FAERS Safety Report 5613638-0 (Version None)
Quarter: 2008Q1

REPORT INFORMATION
  Report Type: 
  Country: None (occurrence: None)
  Receive Date: 20080129
  Receipt Date: 20080116
  Transmission Date: 20080703
  Serious: Yes (Life-Threatening, Hospitalization)
  Sender: FDA-Public Use
  Company Number: 44411

PATIENT
  Age: 79 Year
  Sex: Male

DRUGS (1)
  1. COLCHICUM JTL LIQ [Suspect]
     Indication: GOUT
     Dosage: 1MG/DAILY;

REACTIONS (6)
  - ALANINE AMINOTRANSFERASE INCREASED [None]
  - ASPARTATE AMINOTRANSFERASE INCREASED [None]
  - BLOOD ALKALINE PHOSPHATASE INCREASED [None]
  - PANCREATITIS ACUTE [None]
  - RENAL CYST [None]
  - SPLENOMEGALY [None]
